FAERS Safety Report 5464831-1 (Version None)
Quarter: 2007Q3

REPORT INFORMATION
  Report Type: 
  Country: None (occurrence: None)
  Receive Date: 20070820
  Receipt Date: 20070423
  Transmission Date: 20080115
  Serious: No
  Sender: FDA-Public Use
  Company Number: TPA2007A00875

PATIENT
  Age: 47 Year
  Sex: Female
  Weight: 47.6277 kg

DRUGS (5)
  1. ROZEREM [Suspect]
     Indication: INSOMNIA
     Dosage: 8 MG, QHS, PER ORAL
     Route: 048
     Dates: start: 20070420, end: 20070421
  2. FROVA (FROVATRIPTAN SUCCINATE MONOHYDRATE) [Concomitant]
  3. EXCEDRIN TENSION (CAFFEINE, PARACETAMOL) [Concomitant]
  4. ASPIRIN [Concomitant]
  5. UNK VITAMIN (VITAMINS) [Concomitant]

REACTIONS (3)
  - INITIAL INSOMNIA [None]
  - SOMNOLENCE [None]
  - VISION BLURRED [None]
